FAERS Safety Report 16238624 (Version 2)
Quarter: 2019Q2

REPORT INFORMATION
  Report Type: Report from Study
  Country: JP (occurrence: JP)
  Receive Date: 20190425
  Receipt Date: 20190507
  Transmission Date: 20190711
  Serious: Yes (Other)
  Sender: FDA-Public Use
  Company Number: JP-TEVA-2019-JP-1041409

PATIENT
  Age: 40 Year
  Sex: Female

DRUGS (3)
  1. ASPIRIN. [Suspect]
     Active Substance: ASPIRIN
     Indication: ANTICOAGULANT THERAPY
     Dosage: 81 MILLIGRAM DAILY; LOW-DOSE
     Route: 065
  2. PREDNISOLONE. [Suspect]
     Active Substance: PREDNISOLONE
     Dosage: FOLLOWING INITIATION, THE DOSE WAS TAPERED BY 5MG EVERY TWO WEEKS AND MAINTAINED UNTIL DELIVERY
     Route: 065
  3. SAIREI-TO [Suspect]
     Active Substance: UNSPECIFIED INGREDIENT
     Indication: IMMUNOSUPPRESSANT DRUG THERAPY
     Dosage: 9 GRAM DAILY; NINE G OF TJ-114 CONTAIN BUPLEURUM FALCATUM [BUPLEURUM ROOT] 1.6G, ALISMA RHIZOME 1.1G
     Route: 065

REACTIONS (2)
  - Abortion spontaneous [Unknown]
  - Maternal exposure during pregnancy [Unknown]
